FAERS Safety Report 14330180 (Version 1)
Quarter: 2017Q4

REPORT INFORMATION
  Report Type: Spontaneous
  Country: NL (occurrence: NL)
  Receive Date: 20171227
  Receipt Date: 20171227
  Transmission Date: 20180321
  Serious: Yes (Death)
  Sender: FDA-Public Use
  Company Number: NL-ALLERGAN-1773856US

PATIENT
  Age: 69 Year
  Sex: Male

DRUGS (1)
  1. TRIPTORELIN PAMOATE - BP [Suspect]
     Active Substance: TRIPTORELIN PAMOATE
     Indication: PRODUCT USED FOR UNKNOWN INDICATION
     Dosage: 22.5 MG, EVERY 24 WEEKS
     Route: 065
     Dates: start: 20170113

REACTIONS (1)
  - Metastases to spine [Fatal]

NARRATIVE: CASE EVENT DATE: 2017
